FAERS Safety Report 6158979-6 (Version None)
Quarter: 2009Q2

REPORT INFORMATION
  Report Type: 
  Country: None (occurrence: None)
  Receive Date: 20090417
  Receipt Date: 20090407
  Transmission Date: 20091009
  Serious: Yes (Other)
  Sender: FDA-Public Use
  Company Number: AU-PFIZER INC-2009190650

PATIENT

DRUGS (3)
  1. SYNAREL [Suspect]
     Indication: IN VITRO FERTILISATION
     Dosage: UNK
     Route: 045
     Dates: start: 20070101
  2. FOLLICLE-STIMULATING HORMONE, HUMAN [Concomitant]
     Indication: IN VITRO FERTILISATION
     Dosage: UNK
  3. ELEVIT PRONATAL [Concomitant]

REACTIONS (2)
  - SWELLING FACE [None]
  - SWOLLEN TONGUE [None]
